FAERS Safety Report 16971588 (Version 1)
Quarter: 2019Q4

REPORT INFORMATION
  Report Type: Spontaneous
  Country: US (occurrence: US)
  Receive Date: 20191029
  Receipt Date: 20191029
  Transmission Date: 20200122
  Serious: No
  Sender: FDA-Public Use
  Company Number: US-PARATEK PHARMACEUTICALS, INC.-2019PTK00054

PATIENT
  Age: 14 Year
  Sex: Male
  Weight: 45.62 kg

DRUGS (21)
  1. UNSPECIFIED PROBIOTIC [Concomitant]
  2. AZITHROMYCIN ANHYDROUS. [Concomitant]
     Active Substance: AZITHROMYCIN ANHYDROUS
     Dosage: UNK, 1X/DAY
  3. PERIACTIN [Concomitant]
     Active Substance: CYPROHEPTADINE HYDROCHLORIDE
  4. IMIPENEM [Concomitant]
     Active Substance: IMIPENEM
  5. NUZYRA [Suspect]
     Active Substance: OMADACYCLINE
     Indication: LUNG ABSCESS
  6. ZENPEP [Concomitant]
     Active Substance: PANCRELIPASE AMYLASE\PANCRELIPASE LIPASE\PANCRELIPASE PROTEASE
  7. CLOFAZIMINE [Concomitant]
     Active Substance: CLOFAZIMINE
  8. AMIKACIN. [Concomitant]
     Active Substance: AMIKACIN
  9. NUZYRA [Suspect]
     Active Substance: OMADACYCLINE
     Indication: MYCOBACTERIUM ABSCESSUS INFECTION
     Dosage: 150 MG, 1X/DAY
     Route: 048
     Dates: start: 20190430
  10. UNSPECIFIED PROBIOTIC [Concomitant]
  11. PREVACID [Concomitant]
     Active Substance: LANSOPRAZOLE
  12. MULTIVITAMIN WITH EXTRA VITAMIN A, E, C, AND K [Concomitant]
  13. ALBUTEROL. [Concomitant]
     Active Substance: ALBUTEROL
  14. FLONASE [Concomitant]
     Active Substance: FLUTICASONE PROPIONATE
  15. SINUS RINSE [Concomitant]
     Active Substance: SODIUM BICARBONATE\SODIUM CHLORIDE
     Dosage: UNK, 2X/DAY
  16. ZANTAC [Concomitant]
     Active Substance: RANITIDINE HYDROCHLORIDE
  17. SINGULAIR [Concomitant]
     Active Substance: MONTELUKAST SODIUM
  18. HYPERTONIC SALINE [Concomitant]
     Active Substance: SODIUM CHLORIDE
  19. AVYCAZ [Concomitant]
     Active Substance: AVIBACTAM SODIUM\CEFTAZIDIME
  20. PULMOZYME [Concomitant]
     Active Substance: DORNASE ALFA
  21. ADVAIR HFA [Concomitant]
     Active Substance: FLUTICASONE PROPIONATE\SALMETEROL XINAFOATE

REACTIONS (4)
  - Tooth discolouration [Not Recovered/Not Resolved]
  - Drug dose titration not performed [Recovered/Resolved]
  - Off label use [Not Recovered/Not Resolved]
  - Gingival discolouration [Not Recovered/Not Resolved]

NARRATIVE: CASE EVENT DATE: 20190430
